FAERS Safety Report 9030473 (Version 1)
Quarter: 2013Q1

REPORT INFORMATION
  Report Type: Spontaneous
  Country: US (occurrence: US)
  Receive Date: 20130122
  Receipt Date: 20130122
  Transmission Date: 20140127
  Serious: Yes (Other)
  Sender: FDA-Public Use
  Company Number: US-JNJFOC-20130106093

PATIENT
  Age: 46 None
  Sex: Male
  Weight: 99.79 kg

DRUGS (5)
  1. REMICADE [Suspect]
     Indication: ANKYLOSING SPONDYLITIS
     Dosage: OVER 4 YEARS
     Route: 042
  2. REMICADE [Suspect]
     Indication: ANKYLOSING SPONDYLITIS
     Dosage: IN THE END OF 2010 OR BEGINING OF 2011
     Route: 042
  3. REMICADE [Suspect]
     Indication: RHEUMATOID ARTHRITIS
     Dosage: IN THE END OF 2010 OR BEGINING OF 2011
     Route: 042
  4. REMICADE [Suspect]
     Indication: RHEUMATOID ARTHRITIS
     Dosage: OVER 4 YEARS
     Route: 042
  5. PREDNISONE [Suspect]
     Indication: EYE INFLAMMATION
     Route: 047
     Dates: start: 201212

REACTIONS (3)
  - Blindness [Recovering/Resolving]
  - Uveitis [Recovering/Resolving]
  - Inflammation [Recovering/Resolving]
